FAERS Safety Report 23393012 (Version 1)
Quarter: 2024Q1

REPORT INFORMATION
  Report Type: Spontaneous
  Country: US (occurrence: US)
  Receive Date: 20240111
  Receipt Date: 20240111
  Transmission Date: 20240409
  Serious: No
  Sender: FDA-Public Use
  Company Number: US-NOVOPROD-1138742

PATIENT

DRUGS (1)
  1. RYBELSUS [Suspect]
     Active Substance: SEMAGLUTIDE
     Indication: Glucose tolerance impaired
     Dosage: 7MG
     Route: 048
     Dates: end: 2023

REACTIONS (10)
  - Weight increased [Unknown]
  - Rash [Unknown]
  - Lethargy [Unknown]
  - Vomiting [Not Recovered/Not Resolved]
  - Nausea [Unknown]
  - Diarrhoea [Unknown]
  - Constipation [Unknown]
  - Abdominal pain upper [Unknown]
  - Dizziness [Unknown]
  - Off label use [Unknown]
